FAERS Safety Report 7400883-7 (Version None)
Quarter: 2011Q2

REPORT INFORMATION
  Report Type: 
  Country: None (occurrence: None)
  Receive Date: 20110407
  Receipt Date: 20110405
  Transmission Date: 20111010
  Serious: Yes (Other)
  Sender: FDA-Public Use
  Company Number: US-BAYER-2011-029320

PATIENT
  Sex: Female

DRUGS (2)
  1. YAZ [Suspect]
     Dosage: UNK
     Dates: start: 20070101, end: 20080501
  2. YASMIN [Suspect]
     Dosage: UNK
     Dates: start: 20080501, end: 20080701

REACTIONS (2)
  - INJURY [None]
  - PULMONARY EMBOLISM [None]
